FAERS Safety Report 7031036-2 (Version None)
Quarter: 2010Q4

REPORT INFORMATION
  Report Type: 
  Country: None (occurrence: None)
  Receive Date: 20101006
  Receipt Date: 20100927
  Transmission Date: 20110411
  Serious: Yes (Life-Threatening, Hospitalization)
  Sender: FDA-Public Use
  Company Number: CH-ALLERGAN-1012520US

PATIENT
  Age: 56 Year
  Sex: Male

DRUGS (1)
  1. BOTULINUM TOXIN TYPE A [Suspect]
     Indication: NEUROGENIC BLADDER
     Dosage: 300 UNITS, SINGLE
     Route: 043

REACTIONS (3)
  - ACUTE CORONARY SYNDROME [None]
  - ACUTE MYOCARDIAL INFARCTION [None]
  - VENTRICULAR FIBRILLATION [None]
